FAERS Safety Report 20488313 (Version 1)
Quarter: 2022Q1

REPORT INFORMATION
  Report Type: Spontaneous
  Country: US (occurrence: US)
  Receive Date: 20220218
  Receipt Date: 20220218
  Transmission Date: 20220423
  Serious: No
  Sender: FDA-Public Use
  Company Number: US-ORGANON-O2202USA001198

PATIENT
  Sex: Male

DRUGS (2)
  1. CLARINEX [Suspect]
     Active Substance: DESLORATADINE
     Indication: Hypersensitivity
     Dosage: UNK
     Route: 048
  2. ZYRTEC [Concomitant]
     Active Substance: CETIRIZINE HYDROCHLORIDE
     Dosage: UNK

REACTIONS (7)
  - Adverse event [Unknown]
  - Somnolence [Unknown]
  - Heart rate increased [Unknown]
  - Hyperhidrosis [Unknown]
  - Headache [Unknown]
  - Product dose omission issue [Unknown]
  - Product availability issue [Unknown]
